FAERS Safety Report 7544828-8 (Version None)
Quarter: 2011Q2

REPORT INFORMATION
  Report Type: 
  Country: None (occurrence: None)
  Receive Date: 20110614
  Receipt Date: 20090412
  Transmission Date: 20111010
  Serious: Yes (Hospitalization, Other)
  Sender: FDA-Public Use
  Company Number: US-BAYER-200917871NA

PATIENT
  Sex: Female
  Weight: 66 kg

DRUGS (11)
  1. PLATELETS [Concomitant]
  2. DIGOXIN [Concomitant]
     Dosage: UNK
     Route: 042
     Dates: start: 20060522, end: 20060522
  3. ALTACE [Concomitant]
     Dosage: 5 MG, QD
     Route: 048
     Dates: start: 20060420, end: 20060522
  4. FENTANYL [Concomitant]
     Dosage: UNK
     Route: 042
     Dates: start: 20060522, end: 20060522
  5. CRYOPRECIPITATES [Concomitant]
     Dosage: UNK
     Dates: start: 20060522
  6. PLASMA [Concomitant]
  7. LOTENSIN [Concomitant]
     Dosage: 10 MG, QD
     Route: 048
     Dates: end: 20060522
  8. PLAVIX [Concomitant]
     Dosage: 75 MG, QD
     Route: 048
     Dates: start: 20060420, end: 20060522
  9. LASIX [Concomitant]
     Dosage: 40 MG, QD
     Route: 048
  10. TRASYLOL [Suspect]
     Indication: MITRAL VALVE REPLACEMENT
     Dosage: LOADING DOSE 100ML
     Route: 042
     Dates: start: 20060522, end: 20060522
  11. ACETYLSALICYLIC ACID SRT [Concomitant]
     Dosage: 81 MG, QD
     Route: 048
     Dates: start: 20060420, end: 20060522

REACTIONS (11)
  - DEPRESSION [None]
  - EMOTIONAL DISTRESS [None]
  - STRESS [None]
  - ANXIETY [None]
  - FEAR [None]
  - RENAL FAILURE [None]
  - RENAL IMPAIRMENT [None]
  - RENAL INJURY [None]
  - PAIN [None]
  - MULTI-ORGAN FAILURE [None]
  - UNEVALUABLE EVENT [None]
